FAERS Safety Report 7585141-2 (Version None)
Quarter: 2011Q3

REPORT INFORMATION
  Report Type: 
  Country: None (occurrence: None)
  Receive Date: 20110701
  Receipt Date: 20110621
  Transmission Date: 20111222
  Serious: Yes (Death, Other)
  Sender: FDA-Public Use
  Company Number: IT-BIOGENIDEC-2011BI023192

PATIENT
  Age: 60 Year
  Sex: Female

DRUGS (5)
  1. METHYLPREDNISOLONE [Concomitant]
     Dates: start: 20090803, end: 20090805
  2. TYSABRI [Suspect]
     Indication: RELAPSING-REMITTING MULTIPLE SCLEROSIS
     Route: 042
     Dates: start: 20090316, end: 20090518
  3. METHYLPREDNISOLONE [Concomitant]
     Dates: start: 20091123, end: 20091125
  4. METHYLPREDNISOLONE [Concomitant]
     Dates: start: 20100211, end: 20100213
  5. TYSABRI [Suspect]
     Route: 042
     Dates: start: 20100310, end: 20100512

REACTIONS (3)
  - MENINGIOMA [None]
  - GASTRIC CANCER [None]
  - ANEURYSM [None]
